FAERS Safety Report 9670521 (Version 1)
Quarter: 2013Q4

REPORT INFORMATION
  Report Type: Spontaneous
  Country: US (occurrence: US)
  Receive Date: 20131106
  Receipt Date: 20131106
  Transmission Date: 20140711
  Serious: No
  Sender: FDA-Public Use
  Company Number: US-BIOGENIDEC-2013BI102703

PATIENT
  Age: 41 Year
  Sex: Female

DRUGS (6)
  1. TYSABRI [Suspect]
     Indication: MULTIPLE SCLEROSIS
     Route: 042
     Dates: start: 20130806
  2. XANAX [Concomitant]
     Indication: ANXIETY
     Route: 048
     Dates: start: 2007
  3. XANAX [Concomitant]
     Indication: PANIC ATTACK
     Route: 048
     Dates: start: 2007
  4. HYDROCODONE [Concomitant]
     Indication: MIGRAINE
  5. HYDROCODONE [Concomitant]
     Indication: PREMEDICATION
  6. HYDROCODONE [Concomitant]
     Indication: HEADACHE

REACTIONS (8)
  - Somnolence [Recovered/Resolved]
  - Depressed mood [Recovered/Resolved]
  - Hyperacusis [Recovered/Resolved]
  - Personality disorder [Not Recovered/Not Resolved]
  - Tremor [Recovered/Resolved]
  - Nervousness [Not Recovered/Not Resolved]
  - Tooth fracture [Recovered/Resolved]
  - Headache [Recovered/Resolved]
